FAERS Safety Report 13251572 (Version 1)
Quarter: 2017Q1

REPORT INFORMATION
  Report Type: Spontaneous
  Country: US (occurrence: US)
  Receive Date: 20170220
  Receipt Date: 20170220
  Transmission Date: 20170428
  Serious: No
  Sender: FDA-Public Use
  Company Number: US-TEVA-731699ACC

PATIENT
  Age: 54 Year
  Sex: Female
  Weight: 68.1 kg

DRUGS (1)
  1. PROGESTERONE. [Suspect]
     Active Substance: PROGESTERONE
     Indication: MENOPAUSE
     Dates: start: 201606

REACTIONS (3)
  - Pruritus [Recovered/Resolved]
  - Rash [Recovered/Resolved]
  - Therapeutic response unexpected [Unknown]

NARRATIVE: CASE EVENT DATE: 201606
